FAERS Safety Report 8391834-X (Version None)
Quarter: 2012Q2

REPORT INFORMATION
  Report Type: 
  Country: None (occurrence: None)
  Receive Date: 20120529
  Receipt Date: 20120528
  Transmission Date: 20120825
  Serious: Yes (Hospitalization)
  Sender: FDA-Public Use
  Company Number: US-GLAXOSMITHKLINE-A0934211A

PATIENT
  Age: 49 Year
  Sex: Female

DRUGS (1)
  1. AVANDIA [Suspect]
     Indication: DIABETES MELLITUS
     Dosage: 8MG PER DAY
     Route: 048
     Dates: start: 20000101, end: 20090601

REACTIONS (7)
  - ARRHYTHMIA [None]
  - HYPERTENSION [None]
  - THYROID DISORDER [None]
  - PULMONARY HYPERTENSION [None]
  - CORONARY ARTERY BYPASS [None]
  - ANGINA PECTORIS [None]
  - MYOCARDIAL INFARCTION [None]
